FAERS Safety Report 25795970 (Version 1)
Quarter: 2025Q3

REPORT INFORMATION
  Report Type: Spontaneous
  Country: US (occurrence: US)
  Receive Date: 20250912
  Receipt Date: 20250912
  Transmission Date: 20251020
  Serious: Yes (Other)
  Sender: HIKMA
  Company Number: US-HIKMA PHARMACEUTICALS USA INC.-US-H14001-25-10157

PATIENT
  Age: 71 Year
  Sex: Female

DRUGS (2)
  1. CAPECITABINE [Suspect]
     Active Substance: CAPECITABINE
     Indication: Anal cancer
  2. MITOMYCIN [Suspect]
     Active Substance: MITOMYCIN
     Indication: Anal cancer
     Route: 065

REACTIONS (1)
  - Arteriospasm coronary [Unknown]
